FAERS Safety Report 8838914 (Version 1)
Quarter: 2012Q4

REPORT INFORMATION
  Report Type: Spontaneous
  Country: US (occurrence: None)
  Receive Date: 20121011
  Receipt Date: 20121011
  Transmission Date: 20130627
  Serious: No
  Sender: FDA-Public Use
  Company Number: None

PATIENT
  Age: 73 Year
  Sex: Male

DRUGS (2)
  1. SAMSCA [Suspect]
     Indication: RHEUMATOID ARTHRITIS
     Dosage: 15MG DAILY PO
     Route: 048
     Dates: start: 20120202
  2. SAMSCA [Suspect]
     Indication: INFLAMMATION
     Dosage: 15MG DAILY PO
     Route: 048
     Dates: start: 20120202

REACTIONS (1)
  - Amnesia [None]
